FAERS Safety Report 5710387-5 (Version None)
Quarter: 2008Q2

REPORT INFORMATION
  Report Type: 
  Country: None (occurrence: None)
  Receive Date: 20080418
  Receipt Date: 20080407
  Transmission Date: 20081010
  Serious: Yes (Other)
  Sender: FDA-Public Use
  Company Number: PFIZER INC-2008032318

PATIENT
  Sex: Female
  Weight: 62.727 kg

DRUGS (5)
  1. CHANTIX [Suspect]
     Indication: SMOKING CESSATION THERAPY
  2. CYMBALTA [Concomitant]
  3. XANAX [Concomitant]
  4. PERCOCET [Concomitant]
  5. AMBIEN [Concomitant]

REACTIONS (4)
  - DEPRESSION [None]
  - NAUSEA [None]
  - PANIC REACTION [None]
  - VOMITING [None]
